FAERS Safety Report 10771841 (Version 1)
Quarter: 2015Q1

REPORT INFORMATION
  Report Type: Spontaneous
  Country: TR (occurrence: TR)
  Receive Date: 20150206
  Receipt Date: 20150206
  Transmission Date: 20150721
  Serious: Yes (Death)
  Sender: FDA-Public Use
  Company Number: TR-009507513-1502TUR002949

PATIENT

DRUGS (2)
  1. IRINOTECAN HYDROCHLORIDE. [Suspect]
     Active Substance: IRINOTECAN HYDROCHLORIDE
     Indication: EWING^S SARCOMA RECURRENT
     Dosage: 20 MG/M2 DAY FOR TWO WEEKS, FROM THE FIRST TO THE FIFTH AND THE EIGHTH TO THE TWELFTH DAYS
     Route: 042
  2. TEMOZOLOMIDE. [Suspect]
     Active Substance: TEMOZOLOMIDE
     Indication: EWING^S SARCOMA RECURRENT
     Dosage: 100 MG/M2 DAY, 1 HOUR PRIOR TO IRINOTECAN FOR DAYS 1 TO 5 IN THE FIRST WEEK, EVERY 28 DAYS
     Route: 048

REACTIONS (1)
  - Drug effect incomplete [Fatal]
